FAERS Safety Report 14115402 (Version 1)
Quarter: 2017Q4

REPORT INFORMATION
  Report Type: Not Available
  Country: US (occurrence: US)
  Receive Date: 20171023
  Receipt Date: 20171023
  Transmission Date: 20180321
  Serious: No
  Sender: FDA-Public Use
  Company Number: US-NEUROCRINE BIOSCIENCES INC.-2017NBI00907

PATIENT
  Age: 65 Year
  Sex: Male

DRUGS (14)
  1. NEXIUM [Concomitant]
     Active Substance: ESOMEPRAZOLE MAGNESIUM
  2. GEODON [Concomitant]
     Active Substance: ZIPRASIDONE HYDROCHLORIDE\ZIPRASIDONE MESYLATE
  3. VICTOZA [Concomitant]
     Active Substance: LIRAGLUTIDE
  4. ALDACTONE [Concomitant]
     Active Substance: SPIRONOLACTONE
  5. INGREZZA [Suspect]
     Active Substance: VALBENAZINE
     Indication: PRODUCT USED FOR UNKNOWN INDICATION
     Route: 048
     Dates: start: 20170830
  6. ASPIRIN. [Concomitant]
     Active Substance: ASPIRIN
  7. LANTUS [Concomitant]
     Active Substance: INSULIN GLARGINE
  8. ZALEPLON. [Concomitant]
     Active Substance: ZALEPLON
  9. CLONAZEPAM. [Concomitant]
     Active Substance: CLONAZEPAM
  10. LAMICTAL [Concomitant]
     Active Substance: LAMOTRIGINE
  11. HUMALOG [Concomitant]
     Active Substance: INSULIN LISPRO
  12. LOPRESSOR [Concomitant]
     Active Substance: METOPROLOL TARTRATE
  13. XIFAXAN [Concomitant]
     Active Substance: RIFAXIMIN
  14. SYNTHROID [Concomitant]
     Active Substance: LEVOTHYROXINE SODIUM

REACTIONS (2)
  - Irritability [Unknown]
  - Sluggishness [Unknown]

NARRATIVE: CASE EVENT DATE: 20170901
